FAERS Safety Report 18704428 (Version 1)
Quarter: 2021Q1

REPORT INFORMATION
  Report Type: Spontaneous
  Country: FR (occurrence: FR)
  Receive Date: 20210106
  Receipt Date: 20210106
  Transmission Date: 20210419
  Serious: Yes (Other)
  Sender: FDA-Public Use
  Company Number: FR-PFIZER INC-2020514959

PATIENT
  Age: 73 Year
  Sex: Female

DRUGS (1)
  1. DALACINE [Suspect]
     Active Substance: CLINDAMYCIN
     Indication: DENTAL OPERATION
     Dosage: 2 DF, 1X/DAY
     Route: 048
     Dates: start: 20201112, end: 20201117

REACTIONS (2)
  - Anorectal discomfort [Recovered/Resolved]
  - Rectal haemorrhage [Recovered/Resolved]

NARRATIVE: CASE EVENT DATE: 20201116
